FAERS Safety Report 12211369 (Version 1)
Quarter: 2016Q1

REPORT INFORMATION
  Report Type: Spontaneous
  Country: JP (occurrence: JP)
  Receive Date: 20160325
  Receipt Date: 20160325
  Transmission Date: 20160526
  Serious: Yes (Life-Threatening, Hospitalization, Disabling, Other)
  Sender: FDA-Public Use
  Company Number: JP-BAYER-2016-035887

PATIENT
  Age: 79 Year
  Sex: Female
  Weight: 45.8 kg

DRUGS (4)
  1. MAGMITT [Concomitant]
     Active Substance: MAGNESIUM OXIDE
     Dosage: DAILY DOSE 990 MG
     Route: 048
     Dates: start: 20150121, end: 20160202
  2. PLETAAL [Interacting]
     Active Substance: CILOSTAZOL
     Indication: CEREBRAL INFARCTION
     Dosage: DAILY DOSE 50 MG
     Route: 048
     Dates: start: 20120815, end: 20160202
  3. BAYASPIRIN [Suspect]
     Active Substance: ASPIRIN
     Indication: CEREBRAL INFARCTION
     Dosage: 100 MG, QD
     Route: 048
     Dates: start: 20111130, end: 20160202
  4. MUCOSTA [Concomitant]
     Active Substance: REBAMIPIDE
     Dosage: DAILY DOSE 100 MG
     Route: 048
     Dates: start: 20111130, end: 20160202

REACTIONS (8)
  - Vomiting [Recovered/Resolved with Sequelae]
  - Cerebral haemorrhage [Unknown]
  - Pallor [Recovered/Resolved with Sequelae]
  - Cold sweat [Recovered/Resolved with Sequelae]
  - Cerebellar haemorrhage [Recovered/Resolved with Sequelae]
  - Hydrocephalus [Recovering/Resolving]
  - Anal incontinence [Recovered/Resolved with Sequelae]
  - Labelled drug-drug interaction medication error [None]

NARRATIVE: CASE EVENT DATE: 20160202
